FAERS Safety Report 4608882-5 (Version None)
Quarter: 2005Q1

REPORT INFORMATION
  Report Type: 
  Country: None (occurrence: None)
  Receive Date: 20050311
  Receipt Date: 20050303
  Transmission Date: 20050727
  Serious: Yes (Hospitalization)
  Sender: FDA-Public Use
  Company Number: 2005-00780

PATIENT
  Age: 46 Year
  Sex: Male

DRUGS (6)
  1. TRAMADOL HCL [Suspect]
     Indication: BACK PAIN
     Dosage: 150 MG, DAILY, ORAL
     Route: 048
  2. PSEUDOEPHEDRINE HCL [Suspect]
     Dosage: 240 MG, DAILY
  3. DEXTROMETHORPHAN HYDROBROMIDE [Concomitant]
  4. ACETAMINOPHEN [Concomitant]
  5. DIAZEPAM [Concomitant]
  6. CELECOXIB (CELECOXIB) [Concomitant]

REACTIONS (3)
  - COLITIS ISCHAEMIC [None]
  - DRUG INTERACTION [None]
  - DRUG INTERACTION POTENTIATION [None]
